FAERS Safety Report 5989384-0 (Version None)
Quarter: 2008Q4

REPORT INFORMATION
  Report Type: 
  Country: None (occurrence: None)
  Receive Date: 20081210
  Receipt Date: 20081201
  Transmission Date: 20090506
  Serious: Yes (Hospitalization)
  Sender: FDA-Public Use
  Company Number: US-JNJCH-2008056199

PATIENT
  Age: 26 Year
  Sex: Female

DRUGS (1)
  1. DIPHENHYDRAMINE HCL [Suspect]
     Indication: DRUG USE FOR UNKNOWN INDICATION
     Dosage: TEXT:INGESTED 2 FULL BOTTLES
     Route: 048

REACTIONS (17)
  - AGGRESSION [None]
  - DRUG TOXICITY [None]
  - ELECTROCARDIOGRAM QRS COMPLEX PROLONGED [None]
  - HEART SOUNDS ABNORMAL [None]
  - ILEUS PARALYTIC [None]
  - LOSS OF CONSCIOUSNESS [None]
  - METABOLIC ACIDOSIS [None]
  - MUCOSAL DRYNESS [None]
  - OVERDOSE [None]
  - PUPILLARY DISORDER [None]
  - PYREXIA [None]
  - REFLEXES ABNORMAL [None]
  - RESPIRATORY RATE DECREASED [None]
  - SINUS TACHYCARDIA [None]
  - SKIN DISORDER [None]
  - SUICIDE ATTEMPT [None]
  - VENTRICULAR TACHYCARDIA [None]
